FAERS Safety Report 22092962 (Version 1)
Quarter: 2023Q1

REPORT INFORMATION
  Report Type: Report from Study
  Country: JP (occurrence: JP)
  Receive Date: 20230314
  Receipt Date: 20230314
  Transmission Date: 20230418
  Serious: Yes (Hospitalization)
  Sender: FDA-Public Use
  Company Number: JP-TAKEDA-2022TUS066486

PATIENT
  Age: 16 Year
  Sex: Male

DRUGS (9)
  1. LISDEXAMFETAMINE DIMESYLATE [Suspect]
     Active Substance: LISDEXAMFETAMINE DIMESYLATE
     Indication: Attention deficit hyperactivity disorder
     Dosage: 30 MILLIGRAM, QD
     Route: 048
     Dates: start: 20220218
  2. REBAMIPIDE [Concomitant]
     Active Substance: REBAMIPIDE
     Indication: Prophylaxis
     Dosage: 300 MILLIGRAM, QD
     Route: 065
  3. INTUNIV [Concomitant]
     Active Substance: GUANFACINE HYDROCHLORIDE
     Indication: Attention deficit hyperactivity disorder
     Dosage: 3 MILLIGRAM, QD
     Route: 065
  4. FLUVOXAMINE [Concomitant]
     Active Substance: FLUVOXAMINE
     Indication: Depression
     Dosage: 25 MILLIGRAM, QD
     Route: 065
     Dates: start: 20220530, end: 20220801
  5. LOXOPROFEN SODIUM [Concomitant]
     Active Substance: LOXOPROFEN SODIUM
     Indication: COVID-19
     Dosage: UNK
     Route: 065
     Dates: start: 20220826, end: 20220905
  6. ACETAMINOPHEN [Concomitant]
     Active Substance: ACETAMINOPHEN
     Indication: COVID-19
     Dosage: 400 MILLIGRAM, QD
     Route: 065
     Dates: start: 20220826, end: 20220828
  7. Sp [Concomitant]
     Indication: COVID-19
     Dosage: 1.5 MILLIGRAM, QD
     Route: 065
     Dates: start: 20220826, end: 20220905
  8. Astomin [Concomitant]
     Indication: COVID-19
     Dosage: 30 MILLIGRAM, QD
     Route: 065
     Dates: start: 20220826, end: 20220901
  9. CARBOCYSTEINE [Concomitant]
     Active Substance: CARBOCYSTEINE
     Indication: COVID-19
     Dosage: 750 MILLIGRAM, QD
     Route: 065
     Dates: start: 20220826, end: 20220901

REACTIONS (4)
  - COVID-19 [Recovered/Resolved]
  - Depression [Recovered/Resolved]
  - Constipation [Recovering/Resolving]
  - Haemorrhoids [Recovering/Resolving]

NARRATIVE: CASE EVENT DATE: 20220530
